FAERS Safety Report 4782880-3 (Version None)
Quarter: 2005Q3

REPORT INFORMATION
  Report Type: 
  Country: None (occurrence: None)
  Receive Date: 20050914
  Receipt Date: 20050602
  Transmission Date: 20060218
  Serious: Yes (Death)
  Sender: FDA-Public Use
  Company Number: 163-20785-05060038

PATIENT
  Age: 48 Year
  Sex: Male

DRUGS (11)
  1. THALOMID [Suspect]
     Indication: DRUG USE FOR UNKNOWN INDICATION
     Dosage: 50-300MG, ORAL
     Route: 048
     Dates: start: 20050105, end: 20050215
  2. THALOMID [Suspect]
     Indication: RENAL CELL CARCINOMA STAGE UNSPECIFIED
     Dosage: 50-300MG, ORAL
     Route: 048
     Dates: start: 20050105, end: 20050215
  3. FLUOROURACIL [Concomitant]
  4. DILAUDID [Concomitant]
  5. REGLAN [Concomitant]
  6. SPORANOX [Concomitant]
  7. KYTRIL [Concomitant]
  8. DECADRON [Concomitant]
  9. BENADRYL [Concomitant]
  10. ATIVAN [Concomitant]
  11. DILANTIN [Concomitant]

REACTIONS (2)
  - DEATH [None]
  - DISEASE PROGRESSION [None]
